FAERS Safety Report 5493295-7 (Version None)
Quarter: 2007Q4

REPORT INFORMATION
  Report Type: 
  Country: None (occurrence: None)
  Receive Date: 20071023
  Receipt Date: 20060914
  Transmission Date: 20080405
  Serious: No
  Sender: FDA-Public Use
  Company Number: US-BRISTOL-MYERS SQUIBB COMPANY-13509542

PATIENT
  Age: 33 Year
  Sex: Female
  Weight: 60 kg

DRUGS (2)
  1. KENALOG-40 [Suspect]
     Indication: HAEMORRHOIDS
     Dates: start: 20060511
  2. VITAMINS [Concomitant]

REACTIONS (2)
  - INJECTION SITE ATROPHY [None]
  - MENSTRUATION IRREGULAR [None]
